FAERS Safety Report 10247033 (Version 3)
Quarter: 2014Q4

REPORT INFORMATION
  Report Type: Spontaneous
  Country: IT (occurrence: IT)
  Receive Date: 20140619
  Receipt Date: 20141013
  Transmission Date: 20150528
  Serious: Yes (Other)
  Sender: FDA-Public Use
  Company Number: IT-SHIRE-IT201403022

PATIENT
  Age: 30 Year
  Sex: Female

DRUGS (7)
  1. POTASSIUM IODIDE [Concomitant]
     Active Substance: POTASSIUM IODIDE
     Indication: HYPOTHYROIDISM
     Dosage: 5 GTT, 1X/DAY:QD
     Route: 065
  2. CORTISONE [Concomitant]
     Active Substance: CORTISONE\HYDROCORTISONE
     Dosage: UNK UNK (HIGH), UNKNOWN
     Route: 065
  3. TRIMETON [Concomitant]
     Active Substance: CHLORPHENIRAMINE MALEATE
     Indication: PREMEDICATION
     Dosage: UNK, UNKNOWN
     Route: 065
  4. TIROSINT [Concomitant]
     Active Substance: LEVOTHYROXINE SODIUM
     Dosage: 1 DF(1 TAB), 1X/DAY:QD
     Route: 065
     Dates: start: 201402
  5. VPRIV [Suspect]
     Active Substance: VELAGLUCERASE ALFA
     Indication: GAUCHER^S DISEASE
     Dosage: 1600 UNITS, OTHER (EVERY 15 DAYS)
     Route: 041
  6. CORTISONE [Concomitant]
     Active Substance: CORTISONE\HYDROCORTISONE
     Indication: PREMEDICATION
     Dosage: UNK UNK (REDUCED), UNKNOWN
     Route: 065
     Dates: start: 20140612
  7. TIROSINT [Concomitant]
     Active Substance: LEVOTHYROXINE SODIUM
     Indication: HYPOTHYROIDISM
     Dosage: UNK (1/2 TAB), 1X/DAY:QD
     Route: 065
     Dates: start: 201311, end: 201402

REACTIONS (4)
  - Infusion related reaction [Recovered/Resolved]
  - Angina pectoris [Recovered/Resolved]
  - Throat tightness [Recovered/Resolved]
  - Tachycardia [Recovered/Resolved]

NARRATIVE: CASE EVENT DATE: 20140612
